FAERS Safety Report 14867946 (Version 4)
Quarter: 2018Q2

REPORT INFORMATION
  Report Type: Spontaneous
  Country: US (occurrence: US)
  Receive Date: 20180509
  Receipt Date: 20180621
  Transmission Date: 20180711
  Serious: No
  Sender: FDA-Public Use
  Company Number: PHEH2018US016602

PATIENT
  Sex: Female

DRUGS (1)
  1. TIMOLOL GFS [Suspect]
     Active Substance: TIMOLOL MALEATE
     Indication: PRODUCT USED FOR UNKNOWN INDICATION
     Dosage: UNK UNK, QD
     Route: 047

REACTIONS (2)
  - Hypersensitivity [Unknown]
  - Product container issue [Unknown]
